FAERS Safety Report 24551166 (Version 1)
Quarter: 2024Q4

REPORT INFORMATION
  Report Type: Spontaneous
  Country: GB (occurrence: GB)
  Receive Date: 20241025
  Receipt Date: 20241025
  Transmission Date: 20250115
  Serious: Yes (Hospitalization, Other)
  Sender: ADVANZ PHARMA
  Company Number: None

PATIENT

DRUGS (2)
  1. MIRTAZAPINE [Suspect]
     Active Substance: MIRTAZAPINE
     Dosage: 45 MG, QD (45 MG NOCTE), TABLET
     Dates: end: 20241011
  2. PREDNISOLONE [Suspect]
     Active Substance: PREDNISOLONE
     Dosage: UNK (TABLET)
     Dates: end: 20241011

REACTIONS (1)
  - Myelosuppression [Recovering/Resolving]
